FAERS Safety Report 10151488 (Version 3)
Quarter: 2014Q2

REPORT INFORMATION
  Report Type: Spontaneous
  Country: JP (occurrence: JP)
  Receive Date: 20140504
  Receipt Date: 20140620
  Transmission Date: 20141212
  Serious: Yes (Other)
  Sender: FDA-Public Use
  Company Number: JP-009507513-1403JPN012061

PATIENT
  Age: 20 Year
  Sex: Female

DRUGS (22)
  1. TEMODAL [Suspect]
     Indication: MALIGNANT OLIGODENDROGLIOMA
     Dosage: 75MG/M2 DAILY, DIVIDED DOSE, FREQUENCY UNKNOWN
     Dates: start: 20121031, end: 20121212
  2. TEMODAL [Suspect]
     Dosage: 150 MG/M2 DAILY, DIVIDED DOSE FREQUENCY UNKNOWN
     Route: 048
     Dates: start: 20130111, end: 20130115
  3. TEMODAL [Suspect]
     Dosage: 150 MG/M2 DAILY, DIVIDED DOSE FREQUENCY UNKNOWN
     Route: 048
     Dates: start: 20130208, end: 20130212
  4. TEMODAL [Suspect]
     Dosage: 150 MG/M2 DAILY, DIVIDED DOSE FREQUENCY UNKNOWN
     Route: 048
     Dates: start: 20130308, end: 20130312
  5. TEMODAL [Suspect]
     Dosage: 150 MG/M2 DAILY, DIVIDED DOSE FREQUENCY UNKNOWN
     Route: 048
     Dates: start: 20130405, end: 20130409
  6. TEMODAL [Suspect]
     Dosage: 150 MG/M2 DAILY, DIVIDED DOSE FREQUENCY UNKNOWN
     Route: 048
     Dates: start: 20130501, end: 20130505
  7. TEMODAL [Suspect]
     Dosage: 150 MG/M2 DAILY, DIVIDED DOSE FREQUENCY UNKNOWN
     Route: 048
     Dates: start: 20130529, end: 20130602
  8. TEMODAL [Suspect]
     Dosage: 150 MG/M2 DAILY, DIVIDED DOSE FREQUENCY UNKNOWN
     Route: 048
     Dates: start: 20130626, end: 20130630
  9. TEMODAL [Suspect]
     Dosage: 150 MG/M2 DAILY, DIVIDED DOSE FREQUENCY UNKNOWN
     Route: 048
     Dates: start: 20130724, end: 20130728
  10. TEMODAL [Suspect]
     Dosage: 150 MG/M2 DAILY, DIVIDED DOSE FREQUENCY UNKNOWN
     Route: 048
     Dates: start: 20130821, end: 20130825
  11. TEMODAL [Suspect]
     Dosage: 150 MG/M2 DAILY, DIVIDED DOSE FREQUENCY UNKNOWN
     Route: 048
     Dates: start: 20130918, end: 20130922
  12. TEMODAL [Suspect]
     Dosage: 150 MG/M2 DAILY, DIVIDED DOSE FREQUENCY UNKNOWN
     Route: 048
     Dates: start: 20131016, end: 20131020
  13. TEMODAL [Suspect]
     Dosage: 150 MG/M2 DAILY, DIVIDED DOSE FREQUENCY UNKNOWN
     Route: 048
     Dates: start: 20131113, end: 20131117
  14. TEMODAL [Suspect]
     Dosage: 150 MG/M2 DAILY, DIVIDED DOSE FREQUENCY UNKNOWN
     Route: 048
     Dates: start: 20131211, end: 20131215
  15. TEMODAL [Suspect]
     Dosage: 150 MG/M2 DAILY, DIVIDED DOSE FREQUENCY UNKNOWN
     Route: 048
     Dates: start: 20140108, end: 20140112
  16. TEMODAL [Suspect]
     Dosage: 150 MG/M2 DAILY, DIVIDED DOSE FREQUENCY UNKNOWN
     Route: 048
     Dates: start: 20140205, end: 20140209
  17. TEMODAL [Suspect]
     Dosage: 150 MG/M2 DAILY, DIVIDED DOSE FREQUENCY UNKNOWN
     Route: 048
     Dates: start: 20140305, end: 20140309
  18. TEMODAL [Suspect]
     Dosage: 150 MG/M2 DAILY, DIVIDED DOSE FREQUENCY UNKNOWN
     Route: 048
     Dates: start: 20140402, end: 20140406
  19. TEMODAL [Suspect]
     Dosage: 150 MG/M2 DAILY, DIVIDED DOSE FREQUENCY UNKNOWN
     Route: 048
     Dates: start: 20140430, end: 20140504
  20. TEMODAL [Suspect]
     Dosage: 150 MG/M2 DAILY, DIVIDED DOSE FREQUENCY UNKNOWN
     Route: 048
     Dates: start: 20140521, end: 20140525
  21. TEGRETOL [Concomitant]
     Indication: EPILEPSY
     Dosage: 200 MG, BID
     Route: 048
     Dates: start: 201210
  22. BAKTAR [Concomitant]
     Indication: ANTIFUNGAL PROPHYLAXIS
     Dosage: 1 DF, BIW
     Route: 048
     Dates: start: 201210

REACTIONS (2)
  - Abortion induced [Unknown]
  - Maternal exposure during pregnancy [Recovered/Resolved]
